FAERS Safety Report 10781615 (Version 3)
Quarter: 2015Q3

REPORT INFORMATION
  Report Type: Spontaneous
  Country: FR (occurrence: FR)
  Receive Date: 20150210
  Receipt Date: 20150826
  Transmission Date: 20151125
  Serious: Yes (Death, Other)
  Sender: FDA-Public Use
  Company Number: FR-ELI_LILLY_AND_COMPANY-FR201502002447

PATIENT
  Age: 66 Year
  Sex: Male

DRUGS (6)
  1. PEMETREXED [Suspect]
     Active Substance: PEMETREXED
     Indication: LUNG ADENOCARCINOMA METASTATIC
     Dosage: 500 MG/M2, UNKNOWN
     Route: 065
  2. FOLIC ACID. [Concomitant]
     Active Substance: FOLIC ACID
     Indication: PREMEDICATION
  3. CISPLATIN. [Concomitant]
     Active Substance: CISPLATIN
     Indication: LUNG ADENOCARCINOMA METASTATIC
     Route: 065
  4. VITAMIN B12                        /00260201/ [Concomitant]
     Indication: PREMEDICATION
  5. TAXOTERE [Concomitant]
     Active Substance: DOCETAXEL
  6. CARBOPLATINE [Concomitant]
     Active Substance: CARBOPLATIN
     Indication: LUNG ADENOCARCINOMA METASTATIC
     Route: 065

REACTIONS (4)
  - Death [Fatal]
  - Cellulitis [Unknown]
  - Paraesthesia [Unknown]
  - Scleroderma-like reaction [Recovering/Resolving]
